FAERS Safety Report 5194965-0 (Version None)
Quarter: 2006Q4

REPORT INFORMATION
  Report Type: 
  Country: None (occurrence: None)
  Receive Date: 20061227
  Receipt Date: 20061219
  Transmission Date: 20070319
  Serious: Yes (Hospitalization)
  Sender: FDA-Public Use
  Company Number: A-NJ2006-13659

PATIENT
  Age: 65 Year
  Sex: Female

DRUGS (1)
  1. TRACLEER [Suspect]
     Indication: PULMONARY HYPERTENSION
     Dosage: UNK, UNK, ORAL
     Route: 048
     Dates: start: 20040630

REACTIONS (2)
  - ABDOMINAL MASS [None]
  - ABDOMINAL PAIN [None]
